FAERS Safety Report 12670345 (Version 1)
Quarter: 2016Q3

REPORT INFORMATION
  Report Type: Other
  Country: DK (occurrence: DK)
  Receive Date: 20160822
  Receipt Date: 20160822
  Transmission Date: 20161109
  Serious: Yes (Death)
  Sender: FDA-Public Use
  Company Number: DK-JUBILANT GENERICS LIMITED-1056562

PATIENT
  Age: 39 Year
  Sex: Male

DRUGS (7)
  1. OLANZAPINE. [Suspect]
     Active Substance: OLANZAPINE
  2. VENLAFAXINE [Concomitant]
     Active Substance: VENLAFAXINE HYDROCHLORIDE
  3. TETRAHYDROCANNABINOL [Concomitant]
     Active Substance: DRONABINOL
  4. OXAZEPAM. [Concomitant]
     Active Substance: OXAZEPAM
  5. MORPHINE SULFATE. [Concomitant]
     Active Substance: MORPHINE SULFATE
  6. DIAZEPAM. [Concomitant]
     Active Substance: DIAZEPAM
  7. PREGABALIN. [Concomitant]
     Active Substance: PREGABALIN

REACTIONS (3)
  - Eosinophilic myocarditis [Fatal]
  - Arrhythmia [Fatal]
  - Prescribed overdose [Fatal]

NARRATIVE: CASE EVENT DATE: 20160808
